FAERS Safety Report 11492462 (Version 2)
Quarter: 2015Q4

REPORT INFORMATION
  Report Type: Spontaneous
  Country: CL (occurrence: CL)
  Receive Date: 20150910
  Receipt Date: 20151005
  Transmission Date: 20160304
  Serious: Yes (Other)
  Sender: FDA-Public Use
  Company Number: CL-BIOMARINAP-CL-2015-107329

PATIENT
  Age: 5 Year
  Sex: Male
  Weight: 20 kg

DRUGS (1)
  1. ALDURAZYME [Suspect]
     Active Substance: LARONIDASE
     Indication: MUCOPOLYSACCHARIDOSIS I
     Dosage: 11.6 MG, QW
     Route: 041
     Dates: start: 201405

REACTIONS (1)
  - Congenital cerebrovascular anomaly [Not Recovered/Not Resolved]

NARRATIVE: CASE EVENT DATE: 20150731
